FAERS Safety Report 11142025 (Version 3)
Quarter: 2015Q2

REPORT INFORMATION
  Report Type: Spontaneous
  Country: JP (occurrence: JP)
  Receive Date: 20150527
  Receipt Date: 20150622
  Transmission Date: 20150821
  Serious: Yes (Other)
  Sender: FDA-Public Use
  Company Number: JP-KERYX BIOPHARMA UK LTD-2014JP000618

PATIENT

DRUGS (6)
  1. PHOSBLOCK [Concomitant]
     Active Substance: FERRIC HYDROXIDE
     Indication: HYPERPHOSPHATAEMIA
     Dosage: UNK
     Route: 048
  2. RIONA [Suspect]
     Active Substance: FERRIC CITRATE ANHYDROUS
     Indication: HYPERPHOSPHATAEMIA
     Dosage: UNK
     Route: 048
     Dates: start: 20140815, end: 20140905
  3. CALTAN [Concomitant]
     Active Substance: CALCIUM CARBONATE
     Indication: HYPERPHOSPHATAEMIA
     Dosage: UNK
     Route: 048
  4. RIONA [Suspect]
     Active Substance: FERRIC CITRATE ANHYDROUS
     Dosage: UNK
     Route: 048
     Dates: start: 20140906, end: 20141013
  5. FOSRENOL [Concomitant]
     Active Substance: LANTHANUM CARBONATE
     Indication: HYPERPHOSPHATAEMIA
     Dosage: UNK
     Route: 048
     Dates: start: 201409
  6. FESIN                              /00023550/ [Concomitant]
     Active Substance: IRON SUCROSE
     Indication: IRON DEFICIENCY
     Dosage: UNK
     Route: 042
     Dates: start: 20140815, end: 20140815

REACTIONS (3)
  - Hyperphosphataemia [Recovered/Resolved]
  - Haemodialysis [None]
  - Polycythaemia [Recovered/Resolved]

NARRATIVE: CASE EVENT DATE: 20141009
